FAERS Safety Report 5155378-0 (Version None)
Quarter: 2006Q4

REPORT INFORMATION
  Report Type: 
  Country: None (occurrence: None)
  Receive Date: 20061121
  Receipt Date: 20060907
  Transmission Date: 20070319
  Serious: Yes (Death, Hospitalization, Other)
  Sender: FDA-Public Use
  Company Number: CA-ELI_LILLY_AND_COMPANY-CA200609002874

PATIENT
  Age: 73 Year
  Sex: Male

DRUGS (7)
  1. FORTEO [Suspect]
     Indication: OSTEOPOROSIS
  2. RAMIPRIL [Concomitant]
  3. DIVALPROEX SODIUM [Concomitant]
  4. LEVETIRACETAM [Concomitant]
  5. LEVOTHYROXINE SODIUM [Concomitant]
  6. CALCIUM [Concomitant]
  7. VITAMIN D [Concomitant]

REACTIONS (7)
  - ARTHRALGIA [None]
  - DEATH [None]
  - LYMPH NODES SCAN ABNORMAL [None]
  - PELVIC FRACTURE [None]
  - SARCOMA [None]
  - SOFT TISSUE INJURY [None]
  - THROMBOSIS [None]
